FAERS Safety Report 8539400-7 (Version None)
Quarter: 2012Q3

REPORT INFORMATION
  Report Type: 
  Country: None (occurrence: None)
  Receive Date: 20120726
  Receipt Date: 20120716
  Transmission Date: 20120928
  Serious: Yes (Hospitalization, Other)
  Sender: FDA-Public Use
  Company Number: US-ELI_LILLY_AND_COMPANY-US201202008391

PATIENT
  Sex: Female

DRUGS (3)
  1. FORTEO [Suspect]
     Indication: OSTEOPOROSIS
     Dosage: 20 UG, QD
     Route: 065
  2. FORTEO [Suspect]
     Dosage: 20 UG, QD
  3. ANTIBIOTICS [Concomitant]

REACTIONS (8)
  - FALL [None]
  - MULTIPLE FRACTURES [None]
  - MALAISE [None]
  - SCAR [None]
  - LOWER LIMB FRACTURE [None]
  - HIP FRACTURE [None]
  - BALANCE DISORDER [None]
  - GASTRIC DISORDER [None]
